FAERS Safety Report 21044310 (Version 1)
Quarter: 2022Q3

REPORT INFORMATION
  Report Type: Report from Study
  Country: UA (occurrence: UA)
  Receive Date: 20220705
  Receipt Date: 20220705
  Transmission Date: 20221026
  Serious: Yes (Hospitalization)
  Sender: FDA-Public Use
  Company Number: UA-JNJFOC-20200621009

PATIENT
  Age: 41 Year
  Sex: Female
  Weight: 85.4 kg

DRUGS (36)
  1. GOLIMUMAB [Suspect]
     Active Substance: GOLIMUMAB
     Indication: Axial spondyloarthritis
     Dosage: PERIOD 1
     Route: 058
     Dates: start: 20181003, end: 20181003
  2. GOLIMUMAB [Suspect]
     Active Substance: GOLIMUMAB
     Dosage: PERIOD 1
     Route: 058
     Dates: start: 20181031, end: 20181031
  3. GOLIMUMAB [Suspect]
     Active Substance: GOLIMUMAB
     Dosage: PERIOD 1
     Route: 058
     Dates: start: 20181201, end: 20181201
  4. GOLIMUMAB [Suspect]
     Active Substance: GOLIMUMAB
     Dosage: PERIOD 1
     Route: 058
     Dates: start: 20181231, end: 20181231
  5. GOLIMUMAB [Suspect]
     Active Substance: GOLIMUMAB
     Dosage: PERIOD 1
     Route: 058
     Dates: start: 20190128, end: 20190128
  6. GOLIMUMAB [Suspect]
     Active Substance: GOLIMUMAB
     Dosage: PERIOD 1
     Route: 058
     Dates: start: 20190228, end: 20190228
  7. GOLIMUMAB [Suspect]
     Active Substance: GOLIMUMAB
     Dosage: PERIOD 1
     Route: 058
     Dates: start: 20190328, end: 20190328
  8. GOLIMUMAB [Suspect]
     Active Substance: GOLIMUMAB
     Dosage: PERIOD 1
     Route: 058
     Dates: start: 20190506, end: 20190506
  9. GOLIMUMAB [Suspect]
     Active Substance: GOLIMUMAB
     Dosage: PERIOD 1
     Route: 058
     Dates: start: 20190606, end: 20190606
  10. GOLIMUMAB [Suspect]
     Active Substance: GOLIMUMAB
     Dosage: PERIOD 1
     Route: 058
     Dates: start: 20190705, end: 20190705
  11. GOLIMUMAB [Suspect]
     Active Substance: GOLIMUMAB
     Dosage: PERIOD 2 - DOUBLE-BLIND
     Route: 058
     Dates: start: 20190805, end: 20190805
  12. GOLIMUMAB [Suspect]
     Active Substance: GOLIMUMAB
     Dosage: PERIOD 2 - DOUBLE-BLIND
     Route: 058
     Dates: start: 20190905, end: 20190905
  13. GOLIMUMAB [Suspect]
     Active Substance: GOLIMUMAB
     Dosage: PERIOD 2 - DOUBLE-BLIND
     Route: 058
     Dates: start: 20191007, end: 20191007
  14. GOLIMUMAB [Suspect]
     Active Substance: GOLIMUMAB
     Dosage: PERIOD 2 - DOUBLE-BLIND
     Route: 058
     Dates: start: 20191101, end: 20191101
  15. GOLIMUMAB [Suspect]
     Active Substance: GOLIMUMAB
     Dosage: PERIOD 2 - DOUBLE-BLIND
     Route: 058
     Dates: start: 20191202, end: 20191202
  16. GOLIMUMAB [Suspect]
     Active Substance: GOLIMUMAB
     Dosage: PERIOD 2 - DOUBLE-BLIND
     Route: 058
     Dates: start: 20191230, end: 20191230
  17. GOLIMUMAB [Suspect]
     Active Substance: GOLIMUMAB
     Dosage: PERIOD 2 - DOUBLE-BLIND
     Route: 058
     Dates: start: 20200203, end: 20200203
  18. GOLIMUMAB [Suspect]
     Active Substance: GOLIMUMAB
     Dosage: PERIOD 2 - DOUBLE-BLIND
     Route: 058
     Dates: start: 20200303, end: 20200303
  19. GOLIMUMAB [Suspect]
     Active Substance: GOLIMUMAB
     Dosage: PERIOD 2 - DOUBLE-BLIND
     Route: 058
     Dates: start: 20200402, end: 20200402
  20. GOLIMUMAB [Suspect]
     Active Substance: GOLIMUMAB
     Dosage: PERIOD 2 - DOUBLE-BLIND
     Route: 058
     Dates: start: 20200504, end: 20200504
  21. GOLIMUMAB [Suspect]
     Active Substance: GOLIMUMAB
     Dosage: PERIOD 2 - DOUBLE-BLIND
     Route: 058
     Dates: start: 20200602, end: 20200602
  22. GOLIMUMAB [Suspect]
     Active Substance: GOLIMUMAB
     Route: 058
  23. LYMPHOMYOSOT                       /07494301/ [Concomitant]
     Indication: Calculus urinary
     Route: 048
     Dates: start: 20200619
  24. DICLAC                             /00372302/ [Concomitant]
     Route: 065
     Dates: start: 201805
  25. UNIDOX                             /00055701/ [Concomitant]
     Indication: Calculus urinary
     Route: 048
     Dates: start: 20200619
  26. LACTOBACILLUS ACIDOPHILUS [Concomitant]
     Active Substance: LACTOBACILLUS ACIDOPHILUS
     Indication: Calculus urinary
     Route: 048
     Dates: start: 20200619
  27. SERRATA [Concomitant]
     Indication: Calculus urinary
     Route: 048
  28. GLUTARGIN                          /01615901/ [Concomitant]
     Indication: Calculus urinary
     Route: 048
     Dates: start: 20200619
  29. DICLOFENAC SODIUM [Concomitant]
     Active Substance: DICLOFENAC SODIUM
     Indication: Calculus urinary
     Route: 054
     Dates: start: 20200619
  30. DOXYCYCLINE [Concomitant]
     Active Substance: DOXYCYCLINE
     Indication: Calculus urinary
     Route: 048
     Dates: start: 20200714
  31. CANEPHRON                          /07490501/ [Concomitant]
     Indication: Calculus urinary
     Route: 048
     Dates: start: 20200714
  32. BLEMAREN [Concomitant]
     Indication: Calculus urinary
     Route: 065
     Dates: start: 20200714
  33. ARGININE GLUTAMATE [Concomitant]
     Active Substance: ARGININE GLUTAMATE
     Indication: Calculus urinary
     Route: 048
     Dates: start: 20200714
  34. ESCHERICHIA COLI [Concomitant]
     Active Substance: ESCHERICHIA COLI
     Indication: Calculus urinary
     Route: 048
     Dates: start: 20200714
  35. REUMALGIN [Concomitant]
     Indication: Calculus urinary
     Route: 054
     Dates: start: 20200714
  36. OMEZ                               /00661201/ [Concomitant]
     Indication: Calculus urinary
     Route: 048
     Dates: start: 20200714

REACTIONS (2)
  - Renal colic [Recovered/Resolved with Sequelae]
  - Pyelonephritis acute [Recovered/Resolved]

NARRATIVE: CASE EVENT DATE: 20200605
